FAERS Safety Report 6186901-5 (Version None)
Quarter: 2009Q2

REPORT INFORMATION
  Report Type: 
  Country: None (occurrence: None)
  Receive Date: 20090508
  Receipt Date: 20090508
  Transmission Date: 20091009
  Serious: No
  Sender: FDA-Public Use
  Company Number: None

PATIENT
  Sex: Female
  Weight: 59.27 kg

DRUGS (4)
  1. DYAZIDE [Suspect]
     Dosage: 1 CAPSULE QD   ORAL
     Route: 048
     Dates: start: 20090120, end: 20090507
  2. ACTONEL [Concomitant]
  3. ALEVE [Concomitant]
  4. HYDROXYCHLOROQUINE SULFATE [Concomitant]

REACTIONS (2)
  - CHILLS [None]
  - FEELING COLD [None]
